FAERS Safety Report 17863845 (Version 2)
Quarter: 2020Q2

REPORT INFORMATION
  Report Type: Spontaneous
  Country: US (occurrence: US)
  Receive Date: 20200605
  Receipt Date: 20200612
  Transmission Date: 20200714
  Serious: Yes (Disabling, Other)
  Sender: FDA-Public Use
  Company Number: US-SA-2020SA142391

PATIENT

DRUGS (1)
  1. GOLD BOND ORIGINAL STRENGTH POWDER [Suspect]
     Active Substance: MENTHOL\ZINC OXIDE
     Dosage: UNK

REACTIONS (6)
  - Exposure to chemical pollution [Unknown]
  - Emotional distress [Unknown]
  - Epithelioid mesothelioma [Unknown]
  - Impaired work ability [Unknown]
  - Deformity [Unknown]
  - Pain [Unknown]

NARRATIVE: CASE EVENT DATE: 20181121
